FAERS Safety Report 17826209 (Version 1)
Quarter: 2020Q2

REPORT INFORMATION
  Report Type: Spontaneous
  Country: CH (occurrence: CH)
  Receive Date: 20200526
  Receipt Date: 20200526
  Transmission Date: 20200714
  Serious: Yes (Hospitalization)
  Sender: FDA-Public Use
  Company Number: CH-PFIZER INC-2020206038

PATIENT
  Age: 60 Year
  Sex: Female

DRUGS (3)
  1. SIRDALUD [Interacting]
     Active Substance: TIZANIDINE
     Dosage: 1 MG, DAILY (UNKNOWN DATE OF STRAT OF THERAPY)
     Route: 048
  2. XANAX [Suspect]
     Active Substance: ALPRAZOLAM
     Dosage: 0.25 MG, DAILY ( UNKNOWN DATE OF STRAT OF THERAPY)
     Route: 048
  3. RIOPAN [MAGALDRATE] [Concomitant]
     Active Substance: MAGALDRATE
     Indication: ABDOMINAL PAIN UPPER
     Dosage: 800 MG, AS NEEDED IN RESERVE IF EPIGASTRALGIA.DATAOF INITIATION OF THERAPY NOT KNOWN.
     Route: 048

REACTIONS (12)
  - Syncope [Recovered/Resolved]
  - Fall [Recovered/Resolved]
  - Headache [Unknown]
  - Emotional disorder [Unknown]
  - Disorientation [Unknown]
  - Confusional state [Unknown]
  - Drug interaction [Unknown]
  - Injury [Recovered/Resolved]
  - Medication error [Recovered/Resolved]
  - Orthostatic hypotension [Recovered/Resolved]
  - Supraventricular extrasystoles [Unknown]
  - Musculoskeletal chest pain [Unknown]

NARRATIVE: CASE EVENT DATE: 202004
